FAERS Safety Report 7739358-4 (Version None)
Quarter: 2011Q3

REPORT INFORMATION
  Report Type: 
  Country: None (occurrence: None)
  Receive Date: 20110909
  Receipt Date: 20110831
  Transmission Date: 20111222
  Serious: Yes (Other)
  Sender: FDA-Public Use
  Company Number: US-AMGEN-USASP2011044713

PATIENT

DRUGS (1)
  1. XGEVA [Suspect]
     Indication: PRODUCT USED FOR UNKNOWN INDICATION
     Dosage: UNK

REACTIONS (3)
  - LUNG CANCER METASTATIC [None]
  - RENAL IMPAIRMENT [None]
  - HYPERCALCAEMIA [None]
